FAERS Safety Report 5181000-3 (Version None)
Quarter: 2006Q4

REPORT INFORMATION
  Report Type: 
  Country: None (occurrence: None)
  Receive Date: 20061220
  Receipt Date: 20061206
  Transmission Date: 20070319
  Serious: Yes (Other)
  Sender: FDA-Public Use
  Company Number: PHBS2006TR18936

PATIENT
  Sex: Female

DRUGS (2)
  1. TRILEPTAL [Suspect]
     Dosage: 900 MG/DAY
     Dates: start: 20050101
  2. TRILEPTAL [Suspect]
     Dosage: 300 MG/DAY
     Dates: start: 20020101

REACTIONS (4)
  - CONVERSION DISORDER [None]
  - CONVULSION [None]
  - DRUG EXPOSURE DURING PREGNANCY [None]
  - DRUG EXPOSURE VIA BREAST MILK [None]
